FAERS Safety Report 20923698 (Version 1)
Quarter: 2022Q2

REPORT INFORMATION
  Report Type: Spontaneous
  Country: CA (occurrence: CA)
  Receive Date: 20220607
  Receipt Date: 20220607
  Transmission Date: 20220721
  Serious: Yes (Life-Threatening, Other)
  Sender: FDA-Public Use
  Company Number: None

PATIENT

DRUGS (1)
  1. LEVETIRACETAM [Suspect]
     Active Substance: LEVETIRACETAM
     Indication: Status epilepticus
     Route: 065

REACTIONS (5)
  - Behaviour disorder [Unknown]
  - Drug ineffective [Unknown]
  - Extravasation [Unknown]
  - Hypotension [Unknown]
  - Respiratory depression [Unknown]
